FAERS Safety Report 5563990-X (Version None)
Quarter: 2007Q4

REPORT INFORMATION
  Report Type: 
  Country: None (occurrence: None)
  Receive Date: 20071217
  Receipt Date: 20071206
  Transmission Date: 20080405
  Serious: Yes (Hospitalization)
  Sender: FDA-Public Use
  Company Number: FR-PFIZER INC-2007103441

PATIENT
  Age: 74 Year
  Sex: Male

DRUGS (5)
  1. XANAX [Suspect]
     Indication: PREMEDICATION
     Route: 048
     Dates: start: 20060612, end: 20060613
  2. ATARAX [Suspect]
     Indication: PREMEDICATION
     Dates: start: 20060612, end: 20060613
  3. MORPHINE [Suspect]
     Route: 042
     Dates: start: 20060613, end: 20060613
  4. DIPRIVAN [Suspect]
     Route: 042
     Dates: start: 20060613, end: 20060613
  5. GELOFUSINE [Suspect]
     Dosage: TEXT:4 %
     Route: 042
     Dates: start: 20060613, end: 20060613

REACTIONS (1)
  - ANAPHYLACTIC SHOCK [None]
